FAERS Safety Report 5974144-7 (Version None)
Quarter: 2008Q4

REPORT INFORMATION
  Report Type: 
  Country: None (occurrence: None)
  Receive Date: 20081201
  Receipt Date: 20081120
  Transmission Date: 20090506
  Serious: Yes (Other)
  Sender: FDA-Public Use
  Company Number: US-PFIZER INC-2008098843

PATIENT

DRUGS (1)
  1. LYRICA [Suspect]

REACTIONS (3)
  - ILEOSTOMY [None]
  - MEDICATION RESIDUE [None]
  - SHORT-BOWEL SYNDROME [None]
